FAERS Safety Report 9483948 (Version 2)
Quarter: 2013Q3

REPORT INFORMATION
  Report Type: Report from Study
  Country: US (occurrence: US)
  Receive Date: 20130828
  Receipt Date: 20130828
  Transmission Date: 20140515
  Serious: Yes (Hospitalization)
  Sender: FDA-Public Use
  Company Number: PHHO2009US09409

PATIENT
  Age: 78 Year
  Sex: Female
  Weight: 61 kg

DRUGS (16)
  1. ALISKIREN [Suspect]
     Indication: CARDIOVASCULAR DISORDER
     Route: 048
     Dates: start: 20080813
  2. ALISKIREN [Suspect]
     Route: 048
     Dates: end: 20091025
  3. FUROSEMIDE [Concomitant]
     Indication: HYPERTENSION
  4. HYZAAR [Concomitant]
     Indication: HYPERTENSION
  5. POTASSIUM CHLORIDE [Concomitant]
  6. CLONIDINE [Concomitant]
     Indication: HYPERTENSION
  7. ZEBETA [Concomitant]
     Indication: HYPERTENSION
  8. NOVOLIN [Concomitant]
  9. OMEPRAZOLE [Concomitant]
  10. ASPIRIN [Concomitant]
  11. LASIX [Concomitant]
  12. PRILOSEC [Concomitant]
  13. SIMVASTATIN [Concomitant]
  14. HYDROCHLOROTHIAZIDE [Concomitant]
     Indication: HYPERTENSION
  15. ISOSORBIDE [Concomitant]
     Indication: HYPERTENSION
  16. ZOCOR [Concomitant]

REACTIONS (22)
  - Syncope [Recovering/Resolving]
  - Renal failure chronic [Recovering/Resolving]
  - Disease progression [Recovering/Resolving]
  - Renal failure acute [Recovering/Resolving]
  - Cardiac failure chronic [Recovered/Resolved with Sequelae]
  - Cardiac failure congestive [Recovering/Resolving]
  - Aortic stenosis [Recovering/Resolving]
  - Blood pressure inadequately controlled [Recovering/Resolving]
  - Normochromic normocytic anaemia [Recovering/Resolving]
  - Loss of consciousness [Recovered/Resolved]
  - Flank pain [Recovering/Resolving]
  - Hypokalaemia [Recovering/Resolving]
  - Mitral valve incompetence [Recovering/Resolving]
  - Tricuspid valve incompetence [Recovering/Resolving]
  - Anxiety [Unknown]
  - Sinus bradycardia [Unknown]
  - Pulmonary oedema [Recovered/Resolved with Sequelae]
  - Dyspnoea [Recovered/Resolved with Sequelae]
  - Blood pressure systolic increased [Recovered/Resolved with Sequelae]
  - Sinus tachycardia [Recovered/Resolved with Sequelae]
  - Myocardial ischaemia [Recovered/Resolved with Sequelae]
  - Ejection fraction decreased [Recovered/Resolved with Sequelae]
